FAERS Safety Report 18866435 (Version 7)
Quarter: 2022Q2

REPORT INFORMATION
  Report Type: Report from Study
  Country: UY (occurrence: UY)
  Receive Date: 20210209
  Receipt Date: 20220608
  Transmission Date: 20220721
  Serious: Yes (Life-Threatening, Hospitalization, Other)
  Sender: FDA-Public Use
  Company Number: UY-TAKEDA-2021TUS005354

PATIENT
  Age: 15 Year
  Sex: Female

DRUGS (6)
  1. ICATIBANT [Suspect]
     Active Substance: ICATIBANT ACETATE
     Indication: Oedema
     Dosage: 30 MILLIGRAM
     Route: 058
     Dates: start: 20210113
  2. ICATIBANT [Suspect]
     Active Substance: ICATIBANT ACETATE
     Indication: Oedema
     Dosage: 30 MILLIGRAM
     Route: 058
     Dates: start: 20210113
  3. ICATIBANT [Suspect]
     Active Substance: ICATIBANT ACETATE
     Indication: Hereditary angioedema
     Dosage: 30 MILLIGRAM
     Route: 058
     Dates: start: 202012
  4. ICATIBANT [Suspect]
     Active Substance: ICATIBANT ACETATE
     Indication: Hereditary angioedema
     Dosage: 30 MILLIGRAM
     Route: 058
     Dates: start: 202012
  5. ICATIBANT [Suspect]
     Active Substance: ICATIBANT ACETATE
     Dosage: 1 DOSAGE FORM
     Route: 050
  6. ICATIBANT [Suspect]
     Active Substance: ICATIBANT ACETATE
     Dosage: 1 DOSAGE FORM
     Route: 050

REACTIONS (16)
  - Syncope [Unknown]
  - Hemiplegia [Recovered/Resolved]
  - Asphyxia [Unknown]
  - Adverse event [Unknown]
  - Ovarian cyst [Unknown]
  - COVID-19 [Unknown]
  - Hypoxia [Unknown]
  - Vomiting [Recovering/Resolving]
  - Stress [Recovered/Resolved]
  - Pain [Recovered/Resolved]
  - Hereditary angioedema [Recovered/Resolved]
  - Infusion site pain [Recovered/Resolved]
  - Purpura [Unknown]
  - Hormone level abnormal [Unknown]
  - Anxiety [Unknown]
  - Diarrhoea [Unknown]

NARRATIVE: CASE EVENT DATE: 20210121
